FAERS Safety Report 15115891 (Version 1)
Quarter: 2018Q3

REPORT INFORMATION
  Report Type: Spontaneous
  Country: FR (occurrence: FR)
  Receive Date: 20180706
  Receipt Date: 20180706
  Transmission Date: 20181010
  Serious: Yes (Death, Life-Threatening)
  Sender: FDA-Public Use
  Company Number: PHHY2018FR038602

PATIENT
  Age: 26 Year
  Sex: Male
  Weight: 65 kg

DRUGS (6)
  1. BUSILVEX [Suspect]
     Active Substance: BUSULFAN
     Indication: BONE MARROW TRANSPLANT
     Dosage: 3.2 MG/KG, QD
     Route: 042
     Dates: start: 20171103, end: 20171104
  2. ENDOXAN [Suspect]
     Active Substance: CYCLOPHOSPHAMIDE
     Indication: BONE MARROW TRANSPLANT
     Dosage: 60 MG/KG, UNK (3 PRISES : 02/11, 11/11 ET 12/11)
     Route: 042
  3. FLUDARABINE [Suspect]
     Active Substance: FLUDARABINE PHOSPHATE
     Indication: BONE MARROW TRANSPLANT
     Dosage: 20 MG/M2, QD
     Route: 042
     Dates: start: 20171026, end: 20171029
  4. AMSACRINE [Suspect]
     Active Substance: AMSACRINE
     Indication: BONE MARROW TRANSPLANT
     Dosage: 180 MG, QD
     Route: 042
     Dates: start: 20171026, end: 20171029
  5. ARACYTINE [Suspect]
     Active Substance: CYTARABINE
     Indication: BONE MARROW TRANSPLANT
     Dosage: 3600 MG, QD
     Route: 042
     Dates: start: 20171026, end: 20171029
  6. MESNA EG [Suspect]
     Active Substance: MESNA
     Indication: PRODUCT USED FOR UNKNOWN INDICATION
     Dosage: UNK
     Route: 042

REACTIONS (2)
  - Septic shock [Fatal]
  - Venoocclusive liver disease [Fatal]

NARRATIVE: CASE EVENT DATE: 201711
